FAERS Safety Report 7177671-2 (Version None)
Quarter: 2010Q4

REPORT INFORMATION
  Report Type: 
  Country: None (occurrence: None)
  Receive Date: 20101220
  Receipt Date: 20101217
  Transmission Date: 20110411
  Serious: Yes (Death)
  Sender: FDA-Public Use
  Company Number: US-B.I. PHARMACEUTICALS,INC./RIDGEFIELD-2010-BP-14658BP

PATIENT
  Age: 65 Year
  Sex: Male

DRUGS (1)
  1. COMBIVENT [Suspect]

REACTIONS (1)
  - CARDIAC ARREST [None]
